FAERS Safety Report 4889296-X (Version None)
Quarter: 2006Q1

REPORT INFORMATION
  Report Type: 
  Country: None (occurrence: None)
  Receive Date: 20060120
  Receipt Date: 20060111
  Transmission Date: 20060701
  Serious: Yes (Other)
  Sender: FDA-Public Use
  Company Number: US-2005-027012

PATIENT
  Age: 43 Year
  Sex: Female
  Weight: 57.1 kg

DRUGS (1)
  1. BETASERON [Suspect]
     Indication: MULTIPLE SCLEROSIS
     Dosage: 2 MIU,  EVERY 3D; SUBCUTANEOUS
     Route: 058
     Dates: start: 20051111, end: 20051125

REACTIONS (4)
  - APPENDICECTOMY [None]
  - CHOLELITHIASIS [None]
  - DEPRESSION [None]
  - PLATELET COUNT DECREASED [None]
